FAERS Safety Report 23337024 (Version 1)
Quarter: 2023Q4

REPORT INFORMATION
  Report Type: Spontaneous
  Country: US (occurrence: US)
  Receive Date: 20231226
  Receipt Date: 20231226
  Transmission Date: 20240110
  Serious: No
  Sender: FDA-Public Use
  Company Number: US-BoehringerIngelheim-2023-BI-279872

PATIENT
  Age: 73 Year
  Sex: Female

DRUGS (1)
  1. SPEVIGO [Suspect]
     Active Substance: SPESOLIMAB-SBZO
     Indication: Product used for unknown indication
     Dates: start: 20231216

REACTIONS (1)
  - Diarrhoea [Unknown]
